FAERS Safety Report 18506228 (Version 1)
Quarter: 2020Q4

REPORT INFORMATION
  Report Type: Spontaneous
  Country: MA (occurrence: MA)
  Receive Date: 20201116
  Receipt Date: 20201116
  Transmission Date: 20210114
  Serious: Yes (Hospitalization, Other)
  Sender: FDA-Public Use
  Company Number: MA-AMNEAL PHARMACEUTICALS-2020-AMRX-03563

PATIENT
  Age: 42 Year
  Sex: Male

DRUGS (3)
  1. ALBUTEROL SULFATE. [Suspect]
     Active Substance: ALBUTEROL SULFATE
     Indication: ASTHMA
     Dosage: UNK
  2. ALBUTEROL SULFATE. [Suspect]
     Active Substance: ALBUTEROL SULFATE
     Dosage: 35 MILLIGRAM, 7 DOSES OF 5 MG EVERY 20 MIN
  3. ALBUTEROL SULFATE. [Suspect]
     Active Substance: ALBUTEROL SULFATE
     Dosage: INCREASED DOSE, UNK

REACTIONS (2)
  - Respiratory failure [Recovered/Resolved]
  - Lactic acidosis [Recovered/Resolved]
